FAERS Safety Report 17955486 (Version 1)
Quarter: 2020Q2

REPORT INFORMATION
  Report Type: Spontaneous
  Country: US (occurrence: US)
  Receive Date: 20200626
  Receipt Date: 20200626
  Transmission Date: 20200714
  Serious: Yes (Disabling, Other)
  Sender: FDA-Public Use
  Company Number: None

PATIENT
  Age: 47 Year
  Sex: Female

DRUGS (6)
  1. AZELASTINE 0.1% 137MCG SPRAY [Suspect]
     Active Substance: AZELASTINE
     Indication: HYPERSENSITIVITY
     Dosage: ?          QUANTITY:4 SPRAY(S);?
     Route: 055
     Dates: start: 20200409, end: 20200626
  2. AZELASTINE 0.1% 137MCG SPRAY [Suspect]
     Active Substance: AZELASTINE
     Indication: SINUS DISORDER
     Dosage: ?          QUANTITY:4 SPRAY(S);?
     Route: 055
     Dates: start: 20200409, end: 20200626
  3. OXYBUTININ [Concomitant]
     Active Substance: OXYBUTYNIN
  4. TRILEPTAL [Concomitant]
     Active Substance: OXCARBAZEPINE
  5. PAXIL [Concomitant]
     Active Substance: PAROXETINE HYDROCHLORIDE
  6. ZYAL [Concomitant]

REACTIONS (6)
  - Condition aggravated [None]
  - Dry mouth [None]
  - Headache [None]
  - Dysgeusia [None]
  - Somnolence [None]
  - Aura [None]

NARRATIVE: CASE EVENT DATE: 20200409
